FAERS Safety Report 8239637-0 (Version None)
Quarter: 2012Q1

REPORT INFORMATION
  Report Type: 
  Country: None (occurrence: None)
  Receive Date: 20120328
  Receipt Date: 20120323
  Transmission Date: 20120608
  Serious: Yes (Death, Hospitalization)
  Sender: FDA-Public Use
  Company Number: US-GENZYME-CLOF-1002088

PATIENT
  Age: 62 Year
  Sex: Male
  Weight: 71 kg

DRUGS (2)
  1. CLOLAR [Suspect]
     Indication: ACUTE MYELOID LEUKAEMIA
     Dosage: 37.2 MG, UNK
     Route: 042
     Dates: start: 20120124
  2. CLOLAR [Suspect]
     Dosage: 37.2 MG, UNK
     Route: 042
     Dates: start: 20120217, end: 20120217

REACTIONS (4)
  - MULTI-ORGAN FAILURE [None]
  - SEPSIS [None]
  - ACUTE MYELOID LEUKAEMIA [None]
  - SEPTIC SHOCK [None]
